FAERS Safety Report 15889745 (Version 1)
Quarter: 2019Q1

REPORT INFORMATION
  Report Type: Report from Study
  Country: US (occurrence: US)
  Receive Date: 20190130
  Receipt Date: 20190130
  Transmission Date: 20190417
  Serious: Yes (Hospitalization, Other)
  Sender: FDA-Public Use
  Company Number: US-MYLANLABS-2018M1090993

PATIENT
  Age: 12 Year
  Sex: Female
  Weight: 38.5 kg

DRUGS (37)
  1. TOBI PODHALER [Suspect]
     Active Substance: TOBRAMYCIN
     Dosage: 300 MILLIGRAM, BID
     Route: 055
     Dates: start: 20170607, end: 20170705
  2. CAYSTON [Suspect]
     Active Substance: AZTREONAM
     Indication: PSEUDOMONAS INFECTION
     Dosage: 75 MILLIGRAM, TID
     Route: 065
     Dates: start: 20140101, end: 20170131
  3. FLONASE                            /00908302/ [Concomitant]
     Active Substance: MOMETASONE FUROATE
     Indication: RHINITIS
     Dosage: UNK
     Route: 065
     Dates: start: 20170101, end: 20170410
  4. CREON [Concomitant]
     Active Substance: PANCRELIPASE AMYLASE\PANCRELIPASE LIPASE\PANCRELIPASE PROTEASE
     Dosage: UNK
     Route: 065
     Dates: start: 20171106
  5. LACTINEX                           /00079701/ [Concomitant]
     Indication: PROPHYLAXIS
     Dosage: UNK
     Route: 065
     Dates: start: 20170101, end: 20170424
  6. CAYSTON [Suspect]
     Active Substance: AZTREONAM
     Dosage: 75 MILLIGRAM, TID
     Route: 065
     Dates: start: 20170706, end: 20170804
  7. CREON [Concomitant]
     Active Substance: PANCRELIPASE AMYLASE\PANCRELIPASE LIPASE\PANCRELIPASE PROTEASE
     Indication: PANCREATIC FAILURE
     Dosage: UNK
     Route: 065
     Dates: start: 20170101, end: 20170411
  8. ALBUTEROL                          /00139501/ [Concomitant]
     Active Substance: ALBUTEROL
     Indication: WHEEZING
     Dosage: UNK
     Route: 065
     Dates: start: 20170101, end: 20170522
  9. ALBUTEROL                          /00139501/ [Concomitant]
     Active Substance: ALBUTEROL
     Dosage: UNK
     Route: 065
     Dates: start: 20170424
  10. TOBI PODHALER [Suspect]
     Active Substance: TOBRAMYCIN
     Dosage: 300 MILLIGRAM, BID
     Route: 055
     Dates: start: 20170805, end: 20170902
  11. TOBI PODHALER [Suspect]
     Active Substance: TOBRAMYCIN
     Dosage: 300 MILLIGRAM, BID
     Route: 055
     Dates: start: 20180125, end: 20180222
  12. CAYSTON [Suspect]
     Active Substance: AZTREONAM
     Dosage: 75 MILLIGRAM, TID
     Route: 065
     Dates: start: 20180512, end: 20180606
  13. CREON [Concomitant]
     Active Substance: PANCRELIPASE AMYLASE\PANCRELIPASE LIPASE\PANCRELIPASE PROTEASE
     Dosage: UNK
     Route: 065
     Dates: start: 20170411, end: 20170522
  14. MEPHYTON [Concomitant]
     Active Substance: PHYTONADIONE
     Indication: CYSTIC FIBROSIS HEPATIC DISEASE
     Dosage: UNK
     Route: 065
     Dates: start: 20170101
  15. MIRALAX [Concomitant]
     Active Substance: POLYETHYLENE GLYCOL 3350
     Indication: CONSTIPATION
     Dosage: UNK
     Route: 065
     Dates: start: 20170101
  16. PREVACID [Concomitant]
     Active Substance: LANSOPRAZOLE
     Indication: PRODUCT USED FOR UNKNOWN INDICATION
     Dosage: UNK
     Route: 065
     Dates: start: 20170101
  17. PULMOZYME [Concomitant]
     Active Substance: DORNASE ALFA
     Indication: OBSTRUCTIVE AIRWAYS DISORDER
     Dosage: UNK
     Route: 065
     Dates: start: 20170101
  18. TOBI PODHALER [Suspect]
     Active Substance: TOBRAMYCIN
     Dosage: 300 MILLIGRAM, BID
     Route: 055
     Dates: start: 20170412, end: 20170424
  19. TOBI PODHALER [Suspect]
     Active Substance: TOBRAMYCIN
     Dosage: 300 MILLIGRAM, BID
     Route: 055
     Dates: start: 20171002, end: 20171030
  20. CAYSTON [Suspect]
     Active Substance: AZTREONAM
     Dosage: 75 MILLIGRAM, TID
     Route: 065
     Dates: start: 20170301, end: 20170328
  21. CAYSTON [Suspect]
     Active Substance: AZTREONAM
     Dosage: 75 MILLIGRAM, TID
     Route: 065
     Dates: start: 20170509, end: 20170606
  22. CAYSTON [Suspect]
     Active Substance: AZTREONAM
     Dosage: 75 MILLIGRAM, TID
     Route: 065
     Dates: start: 20171227, end: 20180124
  23. CAYSTON [Suspect]
     Active Substance: AZTREONAM
     Dosage: 75 MILLIGRAM, TID
     Route: 065
     Dates: start: 20180223, end: 20180606
  24. TOBI PODHALER [Suspect]
     Active Substance: TOBRAMYCIN
     Indication: PSEUDOMONAS INFECTION
     Dosage: 300 MILLIGRAM, BID
     Route: 055
     Dates: start: 20160101, end: 20170228
  25. CAYSTON [Suspect]
     Active Substance: AZTREONAM
     Dosage: 75 MILLIGRAM, TID
     Route: 065
     Dates: start: 20170903, end: 20171001
  26. CREON [Concomitant]
     Active Substance: PANCRELIPASE AMYLASE\PANCRELIPASE LIPASE\PANCRELIPASE PROTEASE
     Dosage: UNK
     Route: 065
     Dates: start: 20171009
  27. AZITHROMYCIN ANHYDROUS. [Concomitant]
     Active Substance: AZITHROMYCIN ANHYDROUS
     Indication: PROPHYLAXIS
     Dosage: UNK
     Route: 065
     Dates: start: 20170101
  28. REGLAN [Concomitant]
     Active Substance: METOCLOPRAMIDE HYDROCHLORIDE
     Indication: GASTROINTESTINAL MOTILITY DISORDER
     Dosage: UNK
     Route: 065
     Dates: start: 20170101
  29. CAYSTON [Suspect]
     Active Substance: AZTREONAM
     Dosage: 75 MILLIGRAM, TID
     Route: 065
     Dates: start: 20171122, end: 20171127
  30. ALBUTEROL                          /00139501/ [Concomitant]
     Active Substance: ALBUTEROL
     Indication: OBSTRUCTIVE AIRWAYS DISORDER
     Dosage: UNK
     Route: 065
     Dates: start: 20170101, end: 20170424
  31. CHOLECALCIFEROL [Concomitant]
     Active Substance: CHOLECALCIFEROL
     Indication: VITAMIN D DEFICIENCY
     Dosage: UNK
     Route: 065
     Dates: start: 20170101, end: 20170411
  32. SODIUM CHLORIDE. [Concomitant]
     Active Substance: SODIUM CHLORIDE
     Indication: OBSTRUCTIVE AIRWAYS DISORDER
     Dosage: UNK
     Route: 065
     Dates: start: 20170101
  33. TOBI PODHALER [Suspect]
     Active Substance: TOBRAMYCIN
     Dosage: 300 MILLIGRAM, BID
     Route: 055
     Dates: start: 20171128, end: 20171226
  34. CAYSTON [Suspect]
     Active Substance: AZTREONAM
     Dosage: 75 MILLIGRAM, TID
     Route: 065
     Dates: start: 20171031, end: 20171106
  35. FLONASE                            /00908302/ [Concomitant]
     Active Substance: MOMETASONE FUROATE
     Indication: INFLAMMATION
     Dosage: UNK
     Route: 065
     Dates: start: 20170410
  36. CREON [Concomitant]
     Active Substance: PANCRELIPASE AMYLASE\PANCRELIPASE LIPASE\PANCRELIPASE PROTEASE
     Dosage: UNK
     Route: 065
     Dates: start: 20170522
  37. URSODIOL. [Concomitant]
     Active Substance: URSODIOL
     Indication: CYSTIC FIBROSIS HEPATIC DISEASE
     Dosage: UNK
     Route: 065
     Dates: start: 20170101

REACTIONS (15)
  - Escherichia infection [Unknown]
  - Pneumonia [Unknown]
  - Cough [Unknown]
  - Drug resistance [Unknown]
  - Infective pulmonary exacerbation of cystic fibrosis [Recovered/Resolved]
  - Haemoptysis [Recovered/Resolved]
  - Pulmonary haemorrhage [Unknown]
  - Bronchial wall thickening [Unknown]
  - Protein total increased [Unknown]
  - Lymphocyte count decreased [Unknown]
  - Nasal congestion [Recovered/Resolved]
  - Sputum increased [Unknown]
  - Blood creatinine decreased [Unknown]
  - Anion gap increased [Unknown]
  - Bronchiectasis [Unknown]

NARRATIVE: CASE EVENT DATE: 20170315
